FAERS Safety Report 4745246-8 (Version None)
Quarter: 2005Q3

REPORT INFORMATION
  Report Type: 
  Country: None (occurrence: None)
  Receive Date: 20050812
  Receipt Date: 20050809
  Transmission Date: 20060218
  Serious: Yes (Life-Threatening)
  Sender: FDA-Public Use
  Company Number: OMPQ-NO-0508S-1132

PATIENT
  Age: 60 Year
  Sex: Female
  Weight: 41 kg

DRUGS (3)
  1. OMNIPAQUE 300 [Suspect]
     Dosage: 85 ML, SINGLE DOSE, I.V.
     Route: 042
     Dates: start: 20050729, end: 20050729
  2. OMNIPAQUE 300 [Suspect]
  3. DEXAMETHASONE [Concomitant]

REACTIONS (5)
  - CONTRAST MEDIA REACTION [None]
  - DEPRESSED LEVEL OF CONSCIOUSNESS [None]
  - DIZZINESS [None]
  - PROCEDURAL COMPLICATION [None]
  - URINARY INCONTINENCE [None]
